FAERS Safety Report 5845872-9 (Version None)
Quarter: 2008Q3

REPORT INFORMATION
  Report Type: 
  Country: None (occurrence: None)
  Receive Date: 20080814
  Receipt Date: 20080813
  Transmission Date: 20090109
  Serious: Yes (Life-Threatening, Other)
  Sender: FDA-Public Use
  Company Number: US-BOEHRINGER INGELHEIM GMBH, GERMANY-2008-BP-10580PF

PATIENT
  Age: 56 Year
  Sex: Female
  Weight: 100 kg

DRUGS (6)
  1. SPIRIVA [Suspect]
     Indication: ASTHMA
     Route: 055
     Dates: start: 20080709, end: 20080711
  2. SPIRIVA [Suspect]
     Indication: CHRONIC OBSTRUCTIVE PULMONARY DISEASE
  3. AUCLAX [Concomitant]
     Dates: start: 20080711, end: 20080711
  4. ACIPHEX [Concomitant]
     Dates: start: 20080708, end: 20080711
  5. SYMBICORT [Concomitant]
     Dates: start: 20080709, end: 20080711
  6. FLUCONAZOLE [Concomitant]
     Dates: start: 20080709, end: 20080711

REACTIONS (10)
  - CHEST DISCOMFORT [None]
  - DIZZINESS [None]
  - DRUG HYPERSENSITIVITY [None]
  - DRY MOUTH [None]
  - HYPERSENSITIVITY [None]
  - PRESYNCOPE [None]
  - RASH [None]
  - THROAT TIGHTNESS [None]
  - VENTRICULAR EXTRASYSTOLES [None]
  - VISION BLURRED [None]
